FAERS Safety Report 19074497 (Version 2)
Quarter: 2021Q2

REPORT INFORMATION
  Report Type: Spontaneous
  Country: BG (occurrence: BG)
  Receive Date: 20210330
  Receipt Date: 20210507
  Transmission Date: 20210717
  Serious: Yes (Hospitalization)
  Sender: FDA-Public Use
  Company Number: BG-INCYTE CORPORATION-2020IN013277

PATIENT

DRUGS (1)
  1. JAKAVI [Suspect]
     Active Substance: RUXOLITINIB
     Indication: MYELOFIBROSIS
     Dosage: 20 MG, BID
     Route: 048
     Dates: start: 201904

REACTIONS (6)
  - Erythropenia [Recovering/Resolving]
  - Leukocytosis [Recovering/Resolving]
  - Anaemia [Recovering/Resolving]
  - C-reactive protein increased [Unknown]
  - Blood creatinine increased [Unknown]
  - Serum ferritin increased [Unknown]

NARRATIVE: CASE EVENT DATE: 202002
